FAERS Safety Report 7681849-9 (Version None)
Quarter: 2011Q3

REPORT INFORMATION
  Report Type: 
  Country: None (occurrence: None)
  Receive Date: 20110813
  Receipt Date: 20110804
  Transmission Date: 20111222
  Serious: Yes (Death, Life-Threatening, Hospitalization, Other)
  Sender: FDA-Public Use
  Company Number: JP-AMGEN-JPNCT2011007825

PATIENT
  Age: 65 Year
  Sex: Female
  Weight: 40 kg

DRUGS (6)
  1. FENTANYL [Concomitant]
     Dosage: UNK
     Route: 062
  2. FAMOTIDINE [Concomitant]
     Dosage: UNK
     Route: 048
  3. ANTIHISTAMINES [Concomitant]
     Indication: PROPHYLAXIS
     Dosage: UNK
     Route: 065
  4. VOLTAREN [Concomitant]
     Dosage: UNK
     Route: 048
  5. CHLOR-TRIMETON [Concomitant]
     Dosage: UNK
     Route: 042
  6. PANITUMUMAB [Suspect]
     Indication: COLORECTAL CANCER
     Dosage: 6 MG/KG, Q2WK
     Route: 041
     Dates: start: 20100903, end: 20100903

REACTIONS (5)
  - SEPSIS [None]
  - PLATELET COUNT DECREASED [None]
  - HYPERAMMONAEMIA [None]
  - DECUBITUS ULCER [None]
  - COLORECTAL CANCER [None]
